FAERS Safety Report 15347114 (Version 1)
Quarter: 2018Q3

REPORT INFORMATION
  Report Type: Other
  Country: PT (occurrence: PT)
  Receive Date: 20180904
  Receipt Date: 20180904
  Transmission Date: 20181010
  Serious: Yes (Hospitalization)
  Sender: FDA-Public Use
  Company Number: PT-ACTELION-A-CH2018-178247

PATIENT
  Age: 59 Year
  Sex: Female

DRUGS (5)
  1. BOSENTAN. [Suspect]
     Active Substance: BOSENTAN
     Indication: SCLERODERMA ASSOCIATED DIGITAL ULCER
     Dosage: 250 MG, QD
     Route: 048
  2. FOLIC ACID. [Concomitant]
     Active Substance: FOLIC ACID
  3. PENTOXIFYLLINE. [Concomitant]
     Active Substance: PENTOXIFYLLINE
  4. NIFEDIPINE. [Concomitant]
     Active Substance: NIFEDIPINE
  5. METHOTREXATE. [Concomitant]
     Active Substance: METHOTREXATE
     Dosage: 15 MG, Q1WEEK
     Route: 065

REACTIONS (13)
  - Purulent discharge [Unknown]
  - Ostectomy [Unknown]
  - Joint effusion [Unknown]
  - Osteopenia [Unknown]
  - Arthritis bacterial [Unknown]
  - Joint fluid drainage [Unknown]
  - Pain [Unknown]
  - Osteomyelitis [Unknown]
  - Staphylococcal infection [Unknown]
  - Bone disorder [Unknown]
  - Bone operation [Unknown]
  - Arthritis [Unknown]
  - Plantar fasciitis [Unknown]
